FAERS Safety Report 21401376 (Version 2)
Quarter: 2022Q4

REPORT INFORMATION
  Report Type: Spontaneous
  Country: US (occurrence: None)
  Receive Date: 20221003
  Receipt Date: 20221031
  Transmission Date: 20230113
  Serious: Yes (Other)
  Sender: FDA-Public Use
  Company Number: US-ROCHE-3187837

PATIENT
  Age: 85 Year
  Sex: Male
  Weight: 94.886 kg

DRUGS (9)
  1. SUSVIMO [Suspect]
     Active Substance: RANIBIZUMAB
     Indication: Neovascular age-related macular degeneration
     Route: 031
     Dates: start: 20220210
  2. SUSVIMO [Suspect]
     Active Substance: RANIBIZUMAB
  3. SUSVIMO [Suspect]
     Active Substance: RANIBIZUMAB
  4. SUSVIMO [Suspect]
     Active Substance: RANIBIZUMAB
  5. SUSVIMO [Suspect]
     Active Substance: RANIBIZUMAB
     Indication: Neovascular age-related macular degeneration
  6. SUSVIMO [Suspect]
     Active Substance: RANIBIZUMAB
  7. SUSVIMO [Suspect]
     Active Substance: RANIBIZUMAB
  8. SUSVIMO [Suspect]
     Active Substance: RANIBIZUMAB
  9. EYLEA [Concomitant]
     Active Substance: AFLIBERCEPT
     Indication: Product used for unknown indication
     Route: 065
     Dates: start: 202201, end: 202202

REACTIONS (3)
  - Vitreous haemorrhage [Not Recovered/Not Resolved]
  - Blindness unilateral [Unknown]
  - Eye haemorrhage [Unknown]

NARRATIVE: CASE EVENT DATE: 20220801
